FAERS Safety Report 7655443-X (Version None)
Quarter: 2011Q3

REPORT INFORMATION
  Report Type: 
  Country: None (occurrence: None)
  Receive Date: 20110729
  Receipt Date: 20110714
  Transmission Date: 20111222
  Serious: Yes (Other)
  Sender: FDA-Public Use
  Company Number: 2011MA009223

PATIENT
  Age: 1 Hour
  Sex: Male
  Weight: 3.6 kg

DRUGS (2)
  1. ACYCLOVIR [Suspect]
     Indication: VARICELLA
     Dosage: 4 GM;QD;TRPL
     Route: 064
     Dates: start: 20090508, end: 20090515
  2. CERVARIX (NO PREF. NAME) [Suspect]
     Indication: PROPHYLAXIS
     Dosage: 1X; TRPL
     Route: 064
     Dates: start: 20090717, end: 20090813

REACTIONS (2)
  - ANKYLOGLOSSIA CONGENITAL [None]
  - MATERNAL DRUGS AFFECTING FOETUS [None]
